FAERS Safety Report 8793188 (Version 3)
Quarter: 2012Q4

REPORT INFORMATION
  Report Type: Report from Study
  Country: NL (occurrence: NL)
  Receive Date: 20120918
  Receipt Date: 20121127
  Transmission Date: 20130627
  Serious: Yes (Other)
  Sender: FDA-Public Use
  Company Number: NL-CELGENEUS-114-21880-12090455

PATIENT
  Age: 50 Year
  Sex: Male
  Weight: 70 kg

DRUGS (8)
  1. REVLIMID [Suspect]
     Indication: CHRONIC LYMPHOCYTIC LEUKAEMIA
     Dosage: 5 Milligram
     Route: 048
     Dates: start: 20120709, end: 20120905
  2. REVLIMID [Suspect]
     Dosage: 10 Milligram
     Route: 048
  3. RITUXIMAB [Concomitant]
     Indication: CHRONIC LYMPHOCYTIC LEUKAEMIA
     Route: 065
  4. ALLOPURINOL [Concomitant]
     Indication: PROPHYLAXIS
     Route: 065
     Dates: start: 20120705, end: 20120815
  5. VORICONAZOLE [Concomitant]
     Indication: ANTIFUNGAL PROPHYLAXIS
     Dosage: 600 Milligram
     Route: 065
     Dates: start: 20120707, end: 20120815
  6. COTRIMOXAZOLE [Concomitant]
     Indication: ANTIBACTERIAL PROPHYLAXIS
     Dosage: 1920 Milligram
     Route: 065
     Dates: start: 201205
  7. PREDNISONE [Concomitant]
     Indication: CHRONIC GRAFT VERSUS HOST DISEASE
     Route: 065
     Dates: start: 201109, end: 201201
  8. PREDNISONE [Concomitant]
     Dosage: 7.5 Milligram
     Route: 065
     Dates: start: 201201, end: 20120815

REACTIONS (1)
  - Graft versus host disease in skin [Recovered/Resolved]
